FAERS Safety Report 21138080 (Version 3)
Quarter: 2023Q1

REPORT INFORMATION
  Report Type: Spontaneous
  Country: US (occurrence: US)
  Receive Date: 20220727
  Receipt Date: 20230320
  Transmission Date: 20230417
  Serious: Yes (Other)
  Sender: FDA-Public Use
  Company Number: US-PFIZER INC-PV202200030069

PATIENT
  Age: 80 Year

DRUGS (1)
  1. PREMARIN [Suspect]
     Active Substance: ESTROGENS, CONJUGATED
     Indication: Cervix carcinoma
     Dosage: UNK

REACTIONS (7)
  - Spinal operation [Unknown]
  - Off label use [Unknown]
  - Drug effective for unapproved indication [Unknown]
  - Arthritis [Unknown]
  - Bedridden [Unknown]
  - Gait inability [Unknown]
  - Back pain [Unknown]
